FAERS Safety Report 8398741-7 (Version None)
Quarter: 2012Q2

REPORT INFORMATION
  Report Type: 
  Country: None (occurrence: None)
  Receive Date: 20120531
  Receipt Date: 20120525
  Transmission Date: 20120825
  Serious: Yes (Other)
  Sender: FDA-Public Use
  Company Number: PHHY2012BR045611

PATIENT
  Sex: Female

DRUGS (2)
  1. EXELON [Suspect]
     Dosage: UNK UKN, UNK
  2. ONBREZ [Suspect]
     Indication: LUNG DISORDER
     Dosage: UNK UKN, UNK

REACTIONS (3)
  - MALAISE [None]
  - BEDRIDDEN [None]
  - DEMENTIA ALZHEIMER'S TYPE [None]
